FAERS Safety Report 7330049-0 (Version None)
Quarter: 2011Q1

REPORT INFORMATION
  Report Type: 
  Country: None (occurrence: None)
  Receive Date: 20110303
  Receipt Date: 20110217
  Transmission Date: 20110831
  Serious: Yes (Hospitalization, Other)
  Sender: FDA-Public Use
  Company Number: US-BAYER-201011603NA

PATIENT
  Sex: Female

DRUGS (4)
  1. YASMIN [Suspect]
     Indication: PRODUCT USED FOR UNKNOWN INDICATION
     Dosage: 1 DF (DAILY DOSE), QD, ORAL
     Route: 048
  2. ALBUTEROL [Concomitant]
     Indication: ASTHMA
  3. SYNTHROID [Concomitant]
     Indication: HYPOTHYROIDISM
  4. YAZ [Suspect]
     Indication: PRODUCT USED FOR UNKNOWN INDICATION
     Dosage: 1 DF (DAILY DOSE), QD, ORAL
     Route: 048

REACTIONS (5)
  - DIARRHOEA [None]
  - GALLBLADDER INJURY [None]
  - HIATUS HERNIA [None]
  - VOMITING [None]
  - NAUSEA [None]
